FAERS Safety Report 5512929-1 (Version None)
Quarter: 2007Q4

REPORT INFORMATION
  Report Type: 
  Country: None (occurrence: None)
  Receive Date: 20071108
  Receipt Date: 20071108
  Transmission Date: 20080405
  Serious: Yes (Death)
  Sender: FDA-Public Use
  Company Number: None

PATIENT
  Sex: Female
  Weight: 72 kg

DRUGS (1)
  1. ARIXTRA [Suspect]
     Dosage: 7.5 MG  DAILY  SQ
     Route: 058
     Dates: start: 20070530, end: 20070707

REACTIONS (2)
  - CARDIO-RESPIRATORY ARREST [None]
  - DISEASE PROGRESSION [None]
